FAERS Safety Report 4554912-9 (Version None)
Quarter: 2004Q4

REPORT INFORMATION
  Report Type: 
  Country: None (occurrence: None)
  Receive Date: 20041222
  Receipt Date: 20040917
  Transmission Date: 20050328
  Serious: Yes (Life-Threatening)
  Sender: FDA-Public Use
  Company Number: 209126

PATIENT
  Age: 49 Year
  Sex: Female
  Weight: 136.1 kg

DRUGS (3)
  1. AVASTIN [Suspect]
     Indication: COLORECTAL CANCER METASTATIC
     Dosage: 700 MG, Q2W, INTRAVENOUS
     Route: 042
     Dates: start: 20040310, end: 20040824
  2. AMBIEN [Concomitant]
  3. MONOPRIL [Concomitant]

REACTIONS (1)
  - DEEP VEIN THROMBOSIS [None]
